FAERS Safety Report 8135050-5 (Version None)
Quarter: 2012Q1

REPORT INFORMATION
  Report Type: 
  Country: None (occurrence: None)
  Receive Date: 20120214
  Receipt Date: 20120204
  Transmission Date: 20120608
  Serious: Yes (Hospitalization)
  Sender: FDA-Public Use
  Company Number: US-JNJFOC-20120203345

PATIENT
  Age: 82 Year
  Sex: Female
  Weight: 63.5 kg

DRUGS (5)
  1. ANTIDEPRESSANT [Concomitant]
  2. XARELTO [Suspect]
     Indication: ATRIAL FIBRILLATION
     Route: 048
     Dates: start: 20120101, end: 20120204
  3. XARELTO [Suspect]
     Indication: CEREBROVASCULAR ACCIDENT
     Route: 048
     Dates: start: 20120101, end: 20120204
  4. DURAGESIC-100 [Concomitant]
     Route: 061
  5. PRILOSEC [Concomitant]

REACTIONS (8)
  - LOSS OF CONSCIOUSNESS [None]
  - FALL [None]
  - HEAD INJURY [None]
  - HYPOTENSION [None]
  - ATRIAL FIBRILLATION [None]
  - TACHYCARDIA [None]
  - SINUS ARREST [None]
  - MEDICATION ERROR [None]
